FAERS Safety Report 5969621-9 (Version None)
Quarter: 2008Q4

REPORT INFORMATION
  Report Type: 
  Country: None (occurrence: None)
  Receive Date: 20081126
  Receipt Date: 20080911
  Transmission Date: 20090506
  Serious: No
  Sender: FDA-Public Use
  Company Number: US-ABBOTT-08P-163-0475721-00

PATIENT

DRUGS (2)
  1. SIMCOR [Suspect]
     Indication: DRUG USE FOR UNKNOWN INDICATION
  2. DIPHENHYDRAMINE HYDROCHLORIDE [Concomitant]
     Indication: DRUG USE FOR UNKNOWN INDICATION

REACTIONS (7)
  - DIZZINESS [None]
  - ERYTHEMA [None]
  - FLUSHING [None]
  - OEDEMA PERIPHERAL [None]
  - PALPITATIONS [None]
  - SKIN BURNING SENSATION [None]
  - URTICARIA [None]
